FAERS Safety Report 16050582 (Version 1)
Quarter: 2019Q1

REPORT INFORMATION
  Report Type: Spontaneous
  Country: FR (occurrence: FR)
  Receive Date: 20190308
  Receipt Date: 20190308
  Transmission Date: 20190418
  Serious: Yes (Hospitalization)
  Sender: FDA-Public Use
  Company Number: FR-ACCORD-111005

PATIENT
  Age: 67 Year
  Sex: Male
  Weight: 68 kg

DRUGS (9)
  1. EMEND [Concomitant]
     Active Substance: APREPITANT
     Indication: PROPHYLAXIS
     Route: 048
     Dates: start: 20180305, end: 20180307
  2. ATROPINE. [Concomitant]
     Active Substance: ATROPINE
     Indication: DRUG TOXICITY PROPHYLAXIS
     Dosage: 0.25 MG / ML
     Route: 041
     Dates: start: 20180305, end: 20180305
  3. PEGFILGRASTIM [Concomitant]
     Active Substance: PEGFILGRASTIM
     Indication: PROPHYLAXIS
     Dosage: STRENGTH: 6 MG
     Route: 058
     Dates: start: 20180308, end: 20180308
  4. ONDANSETRON. [Concomitant]
     Active Substance: ONDANSETRON
     Indication: PREMEDICATION
     Dosage: STRENGTH: 2 MG / ML
     Route: 041
     Dates: start: 20180305, end: 20180305
  5. OXALIPLATINE ACCORD [Concomitant]
     Active Substance: OXALIPLATIN
     Indication: GASTROINTESTINAL NEOPLASM
     Dosage: STRENGTH :  5 MG / ML
     Route: 041
     Dates: start: 20180305, end: 20180305
  6. METHYLPREDNISOLONE MYLAN [Concomitant]
     Active Substance: METHYLPREDNISOLONE
     Indication: PREMEDICATION
     Route: 041
     Dates: start: 20180305, end: 20180305
  7. IRINOTECAN MEDAC [Concomitant]
     Active Substance: IRINOTECAN
     Indication: GASTROINTESTINAL NEOPLASM
     Dosage: STRENGTH: 20 MG / ML
     Route: 041
     Dates: start: 20180305, end: 20180305
  8. FLUOROURACIL ACCORD [Suspect]
     Active Substance: FLUOROURACIL
     Indication: GASTROINTESTINAL NEOPLASM
     Dosage: STRENGTH:  50 MG / ML
     Route: 041
     Dates: start: 20180305, end: 20180307
  9. CALCIUM FOLINATE SANDOZ [Concomitant]
     Active Substance: LEUCOVORIN CALCIUM
     Indication: DRUG THERAPY ENHANCEMENT
     Dosage: 10 MG / ML
     Route: 041
     Dates: start: 20180305, end: 20180305

REACTIONS (3)
  - Diarrhoea [Recovered/Resolved]
  - Hypokalaemia [Recovered/Resolved]
  - Nausea [Recovered/Resolved]

NARRATIVE: CASE EVENT DATE: 20180305
